FAERS Safety Report 9409745 (Version 1)
Quarter: 2013Q2

REPORT INFORMATION
  Report Type: Spontaneous
  Country: CH (occurrence: None)
  Receive Date: 20130408
  Receipt Date: 20130408
  Transmission Date: 20140414
  Serious: Yes (Hospitalization)
  Sender: FDA-Public Use
  Company Number: 2013-039250

PATIENT
  Age: 82 Year
  Sex: Male

DRUGS (4)
  1. TIMOPTIC (TIMOLOL MALEATE) [Concomitant]
  2. EYLEA (AFLIBERCEPT) SOLUTION FOR INJECTION [Suspect]
     Indication: MACULAR DEGENERATION
     Route: 031
     Dates: start: 20130114, end: 20130114
  3. VITALUX PLUS (VITAMINS WITH MINERALS) [Concomitant]
  4. FOLVITE (FOLIC ACID) [Concomitant]

REACTIONS (1)
  - Transient ischaemic attack [None]
